FAERS Safety Report 8033766-2 (Version None)
Quarter: 2012Q1

REPORT INFORMATION
  Report Type: 
  Country: None (occurrence: None)
  Receive Date: 20120110
  Receipt Date: 20120105
  Transmission Date: 20120608
  Serious: No
  Sender: FDA-Public Use
  Company Number: US-PFIZER INC-2012004060

PATIENT
  Sex: Female
  Weight: 90.703 kg

DRUGS (2)
  1. ALPRAZOLAM [Suspect]
     Indication: ANXIETY
     Dosage: UNK
  2. XANAX [Suspect]
     Indication: ANXIETY
     Dosage: 1 MG, 2X/DAY
     Route: 048
     Dates: start: 19820101

REACTIONS (5)
  - AGITATION [None]
  - NERVOUSNESS [None]
  - DRUG INEFFECTIVE [None]
  - BRUXISM [None]
  - THYROID DISORDER [None]
